FAERS Safety Report 4758473-0 (Version None)
Quarter: 2005Q3

REPORT INFORMATION
  Report Type: 
  Country: None (occurrence: None)
  Receive Date: 20050830
  Receipt Date: 20050830
  Transmission Date: 20060218
  Serious: Yes (Hospitalization)
  Sender: FDA-Public Use
  Company Number: None

PATIENT
  Age: 45 Year
  Sex: Male
  Weight: 96 kg

DRUGS (1)
  1. AMIODARONE     200MG [Suspect]
     Indication: ATRIAL FIBRILLATION
     Dosage: 200 MG   BID   PO
     Route: 048
     Dates: start: 20010601, end: 20050606

REACTIONS (3)
  - ATRIAL FIBRILLATION [None]
  - BRADYCARDIA [None]
  - POST PROCEDURAL COMPLICATION [None]
